FAERS Safety Report 21639412 (Version 3)
Quarter: 2023Q1

REPORT INFORMATION
  Report Type: Report from Study
  Country: CL (occurrence: CL)
  Receive Date: 20221124
  Receipt Date: 20230128
  Transmission Date: 20230418
  Serious: Yes (Hospitalization)
  Sender: FDA-Public Use
  Company Number: CL-002147023-NVSC2022CL263067

PATIENT
  Age: 78 Year
  Sex: Male
  Weight: 92 kg

DRUGS (1)
  1. COSENTYX [Suspect]
     Active Substance: SECUKINUMAB
     Indication: Psoriatic arthropathy
     Dosage: 150 MG, QMO
     Route: 058
     Dates: start: 20220801

REACTIONS (5)
  - Streptococcal infection [Unknown]
  - Staphylococcal infection [Unknown]
  - Haematological infection [Unknown]
  - Arthritis [Unknown]
  - Pain [Unknown]

NARRATIVE: CASE EVENT DATE: 20221018
